FAERS Safety Report 11005404 (Version 1)
Quarter: 2015Q2

REPORT INFORMATION
  Report Type: Spontaneous
  Country: US (occurrence: US)
  Receive Date: 20150409
  Receipt Date: 20150409
  Transmission Date: 20150821
  Serious: No
  Sender: FDA-Public Use
  Company Number: US-ALLERGAN-1503528US

PATIENT
  Sex: Female

DRUGS (3)
  1. GELNIQUE [Concomitant]
     Active Substance: OXYBUTYNIN\OXYBUTYNIN CHLORIDE
     Indication: HYPERTONIC BLADDER
  2. LUMIGAN [Suspect]
     Active Substance: BIMATOPROST
     Indication: GLAUCOMA
     Dosage: 2 GTT, QHS
     Route: 047
     Dates: start: 2014
  3. CLONAZEPAM. [Concomitant]
     Active Substance: CLONAZEPAM
     Indication: RELAXATION THERAPY
     Dosage: 2 MG, UNK

REACTIONS (1)
  - Scleral hyperaemia [Unknown]
